FAERS Safety Report 8473709-0 (Version None)
Quarter: 2012Q2

REPORT INFORMATION
  Report Type: 
  Country: None (occurrence: None)
  Receive Date: 20120628
  Receipt Date: 20111128
  Transmission Date: 20120825
  Serious: Yes (Other)
  Sender: FDA-Public Use
  Company Number: US-MYLANLABS-2011S1019540

PATIENT
  Age: 48 Year
  Sex: Female
  Weight: 69.4 kg

DRUGS (12)
  1. CLOZAPINE [Suspect]
     Indication: SCHIZOPHRENIA, PARANOID TYPE
     Route: 048
     Dates: start: 20080101, end: 20110801
  2. OXALIPLATIN [Suspect]
     Indication: COLON CANCER
     Route: 042
  3. BEVACIZUMAB [Suspect]
     Indication: COLON CANCER
     Route: 042
  4. FLUOROURACIL [Suspect]
     Route: 042
  5. KLONOPIN [Concomitant]
     Route: 048
  6. FERROUS SULFATE TAB [Concomitant]
  7. CLOZAPINE [Suspect]
     Route: 048
     Dates: end: 20110920
  8. LEUCOVORIN CALCIUM [Suspect]
     Indication: COLON CANCER
     Route: 042
  9. FLUOROURACIL [Suspect]
     Indication: COLON CANCER
     Route: 042
  10. TRILAFON /00023401/ [Concomitant]
     Route: 048
  11. PROZAC [Concomitant]
     Route: 048
  12. METOPROLOL TARTRATE [Concomitant]
     Route: 048

REACTIONS (5)
  - GRANULOCYTOPENIA [None]
  - LEUKOPENIA [None]
  - NAUSEA [None]
  - VOMITING [None]
  - DIARRHOEA [None]
